FAERS Safety Report 17728945 (Version 1)
Quarter: 2020Q2

REPORT INFORMATION
  Report Type: Spontaneous
  Country: UM (occurrence: UM)
  Receive Date: 20200429
  Receipt Date: 20200429
  Transmission Date: 20200714
  Serious: Yes (Hospitalization)
  Sender: FDA-Public Use
  Company Number: None

PATIENT
  Age: 68 Year
  Sex: Male
  Weight: 96.8 kg

DRUGS (8)
  1. KEYTRUDA [Suspect]
     Active Substance: PEMBROLIZUMAB
     Indication: PROSTATE CANCER
     Dosage: ?          OTHER FREQUENCY:Q3W;?
     Route: 042
     Dates: start: 20191218, end: 20200128
  2. LEUPROLIDE (ELIGARD) [Concomitant]
  3. BUDESONIDE. [Concomitant]
     Active Substance: BUDESONIDE
  4. ENZALUTAMIDE, 160MG [Suspect]
     Active Substance: ENZALUTAMIDE
     Indication: PROSTATE CANCER
     Dosage: FREQUENCY: SID
     Route: 048
     Dates: start: 20191218, end: 20200218
  5. HEPARIN [Concomitant]
     Active Substance: HEPARIN SODIUM
  6. ALBUTEROL. [Concomitant]
     Active Substance: ALBUTEROL
  7. LORATADINE TAB [Concomitant]
  8. TIOTROPIUM RESPIMAE INHL [Concomitant]

REACTIONS (6)
  - Abdominal distension [None]
  - Urine output decreased [None]
  - Pelvic haematoma [None]
  - Hypotension [None]
  - Cerebrovascular accident [None]
  - Anaemia [None]

NARRATIVE: CASE EVENT DATE: 20200419
